FAERS Safety Report 13864397 (Version 1)
Quarter: 2017Q3

REPORT INFORMATION
  Report Type: Spontaneous
  Country: US (occurrence: US)
  Receive Date: 20170812
  Receipt Date: 20170812
  Transmission Date: 20171127
  Serious: Yes (Other)
  Sender: FDA-Public Use
  Company Number: None

PATIENT
  Age: 32 Year
  Sex: Female
  Weight: 104.4 kg

DRUGS (12)
  1. ZYRTEC [Concomitant]
     Active Substance: CETIRIZINE HYDROCHLORIDE
  2. YASMIN [Concomitant]
     Active Substance: DROSPIRENONE\ETHINYL ESTRADIOL
  3. ALBUTEROL. [Concomitant]
     Active Substance: ALBUTEROL
  4. IBUPROFEN. [Concomitant]
     Active Substance: IBUPROFEN
  5. MIRALAX [Concomitant]
     Active Substance: POLYETHYLENE GLYCOL 3350
  6. IMITREX [Concomitant]
     Active Substance: SUMATRIPTAN SUCCINATE
  7. METHYLFOLATE [Concomitant]
     Active Substance: LEVOMEFOLATE CALCIUM
  8. EXCEDRIN MIGRAINE [Concomitant]
     Active Substance: ACETAMINOPHEN\ASPIRIN\CAFFEINE
  9. DESVENLAFAXINE 25MG ER TABLETS [Suspect]
     Active Substance: DESVENLAFAXINE SUCCINATE
     Indication: ANXIETY
     Dosage: ?          QUANTITY:1 TABLET(S);?
     Route: 048
     Dates: start: 20170630, end: 20170726
  10. SINGULAIR [Concomitant]
     Active Substance: MONTELUKAST SODIUM
  11. FLONASE [Concomitant]
     Active Substance: FLUTICASONE PROPIONATE
  12. DESVENLAFAXINE 25MG ER TABLETS [Suspect]
     Active Substance: DESVENLAFAXINE SUCCINATE
     Indication: DEPRESSION
     Dosage: ?          QUANTITY:1 TABLET(S);?
     Route: 048
     Dates: start: 20170630, end: 20170726

REACTIONS (14)
  - Dizziness [None]
  - Mood swings [None]
  - Palpitations [None]
  - Tremor [None]
  - Myalgia [None]
  - Nausea [None]
  - Irritability [None]
  - Chills [None]
  - Depression [None]
  - Hyperhidrosis [None]
  - Anxiety [None]
  - Withdrawal syndrome [None]
  - Fatigue [None]
  - Nightmare [None]

NARRATIVE: CASE EVENT DATE: 20170711
